FAERS Safety Report 17434535 (Version 1)
Quarter: 2020Q1

REPORT INFORMATION
  Report Type: Spontaneous
  Country: DE (occurrence: DE)
  Receive Date: 20200219
  Receipt Date: 20200219
  Transmission Date: 20200409
  Serious: Yes (Other)
  Sender: FDA-Public Use
  Company Number: DE-PFIZER INC-2020068494

PATIENT
  Age: 29 Year
  Sex: Female
  Weight: 56 kg

DRUGS (1)
  1. CYTOTEC [Suspect]
     Active Substance: MISOPROSTOL
     Indication: LABOUR INDUCTION
     Dosage: SINGLE DOSE
     Dates: start: 20061014, end: 20061014

REACTIONS (7)
  - Product use in unapproved indication [Recovered/Resolved]
  - Uterine hypertonus [Recovered/Resolved]
  - Labour pain [Recovered/Resolved]
  - Uterine haemorrhage [Recovered/Resolved]
  - Cardiovascular disorder [Recovered/Resolved]
  - Off label use [Recovered/Resolved]
  - Uterine rupture [Recovered/Resolved]

NARRATIVE: CASE EVENT DATE: 20061014
